FAERS Safety Report 12101303 (Version 1)
Quarter: 2016Q1

REPORT INFORMATION
  Report Type: Report from Study
  Country: US (occurrence: US)
  Receive Date: 20160222
  Receipt Date: 20160222
  Transmission Date: 20160526
  Serious: Yes (Hospitalization, Other)
  Sender: FDA-Public Use
  Company Number: US-ABBVIE-16K-163-1560006-00

PATIENT
  Age: 24 Year
  Sex: Female

DRUGS (3)
  1. HUMIRA [Suspect]
     Active Substance: ADALIMUMAB
     Dosage: DAY 15
     Route: 058
     Dates: start: 20151215, end: 20151215
  2. HUMIRA [Suspect]
     Active Substance: ADALIMUMAB
     Dosage: DAY 29
     Route: 058
     Dates: start: 20151229, end: 201602
  3. HUMIRA [Suspect]
     Active Substance: ADALIMUMAB
     Indication: CROHN^S DISEASE
     Route: 058
     Dates: start: 20151201, end: 20151201

REACTIONS (12)
  - PCO2 decreased [Unknown]
  - Exposure to toxic agent [Not Recovered/Not Resolved]
  - Sinus tachycardia [Unknown]
  - Methaemoglobinaemia [Recovered/Resolved]
  - PO2 decreased [Unknown]
  - Incorrect dose administered [Unknown]
  - Dizziness [Unknown]
  - Cyanosis [Unknown]
  - Anxiety [Unknown]
  - Leukocytosis [Unknown]
  - Methaemoglobinaemia [Unknown]
  - Oxygen saturation decreased [Unknown]

NARRATIVE: CASE EVENT DATE: 20160130
